FAERS Safety Report 10639970 (Version 2)
Quarter: 2014Q4

REPORT INFORMATION
  Report Type: Spontaneous
  Country: US (occurrence: US)
  Receive Date: 20141209
  Receipt Date: 20141211
  Transmission Date: 20150529
  Serious: No
  Sender: FDA-Public Use
  Company Number: US-PFIZER INC-2014332938

PATIENT
  Age: 60 Year
  Sex: Male

DRUGS (17)
  1. METFORMIN [Concomitant]
     Active Substance: METFORMIN HYDROCHLORIDE
     Dosage: UNK
     Dates: start: 20141117
  2. POTASSIUM [Concomitant]
     Active Substance: POTASSIUM
     Dosage: 55 MG, UNK
     Dates: start: 20141114
  3. GLYBURIDE. [Concomitant]
     Active Substance: GLYBURIDE
     Dosage: 5 MG, UNK
     Dates: start: 20140930
  4. ASPIRIN-LOW [Concomitant]
     Dosage: 81 MG, EC
     Dates: start: 20141114
  5. TAMSULOSIN [Concomitant]
     Active Substance: TAMSULOSIN
     Dosage: UNK
     Dates: start: 20141112
  6. GLYBURIDE. [Concomitant]
     Active Substance: GLYBURIDE
     Dosage: 5 MG, UNK
     Dates: start: 20141010
  7. GLYBURIDE. [Concomitant]
     Active Substance: GLYBURIDE
     Dosage: UNK
     Dates: start: 20141117
  8. METFORMIN [Concomitant]
     Active Substance: METFORMIN HYDROCHLORIDE
     Dosage: 500 MG, UNK
     Dates: start: 20140906
  9. INLYTA [Suspect]
     Active Substance: AXITINIB
     Dosage: 1 MG AND 5 MG
     Dates: start: 20141118
  10. HYDROCODONE W/ACETAMINOPHEN [Concomitant]
     Active Substance: ACETAMINOPHEN\HYDROCODONE BITARTRATE
     Dosage: UNK
     Dates: start: 20141030
  11. TAMSULOSIN [Concomitant]
     Active Substance: TAMSULOSIN
     Dosage: 0.4 MG, UNK
     Dates: start: 20141013
  12. AMOXICILLIN. [Concomitant]
     Active Substance: AMOXICILLIN
     Dosage: UNK
     Dates: start: 20141016
  13. POTASSIUM [Concomitant]
     Active Substance: POTASSIUM
     Dosage: UNK
  14. INLYTA [Suspect]
     Active Substance: AXITINIB
     Indication: RENAL CANCER
     Dosage: 1 MG AND 5 MG
     Dates: start: 20141103
  15. AMOXICILLIN. [Concomitant]
     Active Substance: AMOXICILLIN
     Dosage: 500 MG, UNK
     Dates: start: 20141012
  16. NEXAVAR [Concomitant]
     Active Substance: SORAFENIB
     Dosage: 200 MG, 1X/DAY AT BEDTIME
     Dates: start: 20140613
  17. HYDROCODONE W/ACETAMINOPHEN [Concomitant]
     Active Substance: ACETAMINOPHEN\HYDROCODONE BITARTRATE
     Dosage: UNK
     Dates: start: 20141028

REACTIONS (2)
  - Vomiting [Recovered/Resolved]
  - Nausea [Recovered/Resolved]

NARRATIVE: CASE EVENT DATE: 20141201
